FAERS Safety Report 8409990 (Version 3)
Quarter: 2013Q4

REPORT INFORMATION
  Report Type: Spontaneous
  Country: US (occurrence: US)
  Receive Date: 20120216
  Receipt Date: 20131218
  Transmission Date: 20140711
  Serious: Yes (Hospitalization, Other)
  Sender: FDA-Public Use
  Company Number: US-ASTRAZENECA-2010SE16712

PATIENT
  Age: 71 Year
  Sex: Male
  Weight: 89.4 kg

DRUGS (2)
  1. NEXIUM [Suspect]
     Indication: GASTROOESOPHAGEAL REFLUX DISEASE
     Route: 048
     Dates: start: 2005, end: 20131201
  2. HEART PILL [Concomitant]
     Indication: CARDIAC DISORDER

REACTIONS (14)
  - Pneumonia [Unknown]
  - Prostatomegaly [Unknown]
  - Bronchitis [Unknown]
  - Gastritis [Unknown]
  - Ulcer [Unknown]
  - Asthenia [Unknown]
  - Tremor [Unknown]
  - Arthritis [Unknown]
  - Memory impairment [Unknown]
  - Parkinson^s disease [Unknown]
  - Abdominal pain upper [Unknown]
  - Malaise [Unknown]
  - Arthralgia [Unknown]
  - Drug dose omission [Unknown]
